FAERS Safety Report 24881668 (Version 4)
Quarter: 2025Q2

REPORT INFORMATION
  Report Type: Spontaneous
  Country: CA (occurrence: CA)
  Receive Date: 20250124
  Receipt Date: 20250514
  Transmission Date: 20250716
  Serious: Yes (Death, Hospitalization)
  Sender: CELLTRION
  Company Number: CA-PFIZER INC-PV202500008929

PATIENT

DRUGS (2)
  1. INFLECTRA [Suspect]
     Active Substance: INFLIXIMAB-DYYB
     Indication: Rheumatoid arthritis
     Route: 042
     Dates: start: 20170228
  2. INFLECTRA [Suspect]
     Active Substance: INFLIXIMAB-DYYB
     Route: 042
     Dates: start: 20241219

REACTIONS (2)
  - COVID-19 [Fatal]
  - Fractured sacrum [Unknown]

NARRATIVE: CASE EVENT DATE: 20250101
